FAERS Safety Report 23786558 (Version 2)
Quarter: 2024Q3

REPORT INFORMATION
  Report Type: Spontaneous
  Country: US (occurrence: US)
  Receive Date: 20240426
  Receipt Date: 20240921
  Transmission Date: 20241016
  Serious: No
  Sender: LUPIN
  Company Number: US-LUPIN PHARMACEUTICALS INC.-2024-03360

PATIENT

DRUGS (1)
  1. MOXIFLOXACIN HYDROCHLORIDE [Suspect]
     Active Substance: MOXIFLOXACIN HYDROCHLORIDE\MOXIFLOXACIN HYDROCHLORIDE MONOHYDRATE
     Indication: Eye infection bacterial
     Dosage: UNK
     Route: 065

REACTIONS (9)
  - Visual impairment [Unknown]
  - Conjunctivitis [Unknown]
  - Malaise [Unknown]
  - Headache [Unknown]
  - Dry eye [Unknown]
  - Eye disorder [Unknown]
  - Disturbance in attention [Unknown]
  - Feeling abnormal [Unknown]
  - Ocular discomfort [Unknown]
